FAERS Safety Report 6013357-5 (Version None)
Quarter: 2008Q4

REPORT INFORMATION
  Report Type: 
  Country: None (occurrence: None)
  Receive Date: 20081219
  Receipt Date: 20081216
  Transmission Date: 20090506
  Serious: Yes (Death)
  Sender: FDA-Public Use
  Company Number: US-KINGPHARMUSA00001-K200801411

PATIENT
  Age: 52 Year
  Sex: Male

DRUGS (3)
  1. ALTACE [Suspect]
     Dosage: UNK
     Route: 048
  2. GLYBURIDE AND METFORMIN HCL [Suspect]
     Dosage: UNK
     Route: 048
  3. DILTIAZEM [Suspect]
     Dosage: UNK
     Route: 048

REACTIONS (1)
  - COMPLETED SUICIDE [None]
